FAERS Safety Report 4303795-0 (Version None)
Quarter: 2004Q1

REPORT INFORMATION
  Report Type: 
  Country: None (occurrence: None)
  Receive Date: 20040223
  Receipt Date: 20040212
  Transmission Date: 20041129
  Serious: No
  Sender: FDA-Public Use
  Company Number: 204709

PATIENT
  Age: 49 Year
  Sex: Female
  Weight: 96.6 kg

DRUGS (6)
  1. XOLAIR [Suspect]
     Indication: ASTHMA
     Dosage: 300 MG, Q2W, SUBCUTANEOUS
     Route: 058
     Dates: start: 20040206
  2. ADVAIR (SALMETEROL XINAFOATE, FLUTICASONE PROPIONATE) [Concomitant]
  3. COMBIVENT (IPRATROPIUM BROMIDE, ALBUTEROL, ALBUTEROL SULFATE) [Concomitant]
  4. EPIPEN (EPINEPHRINE) [Concomitant]
  5. SINGULAIR [Concomitant]
  6. ALBUTEROL INHALER (ALBUTEROL SULFATE, ALBUTEROL) [Concomitant]

REACTIONS (5)
  - HYPERSENSITIVITY [None]
  - PEAK EXPIRATORY FLOW RATE DECREASED [None]
  - RASH GENERALISED [None]
  - RASH PRURITIC [None]
  - WHEEZING [None]
